FAERS Safety Report 4979251-3 (Version None)
Quarter: 2006Q2

REPORT INFORMATION
  Report Type: 
  Country: None (occurrence: None)
  Receive Date: 20060421
  Receipt Date: 20060418
  Transmission Date: 20061013
  Serious: Yes (Other)
  Sender: FDA-Public Use
  Company Number: US-GLAXOSMITHKLINE-A0602229A

PATIENT
  Sex: Male

DRUGS (1)
  1. CONTAC COLD + FLU [Suspect]
     Dosage: 4TAB SINGLE DOSE
     Route: 048

REACTIONS (3)
  - EAR HAEMORRHAGE [None]
  - HEARING IMPAIRED [None]
  - OVERDOSE [None]
